FAERS Safety Report 6923906-8 (Version None)
Quarter: 2010Q3

REPORT INFORMATION
  Report Type: 
  Country: None (occurrence: None)
  Receive Date: 20100813
  Receipt Date: 20100525
  Transmission Date: 20110219
  Serious: No
  Sender: FDA-Public Use
  Company Number: US-BRISTOL-MYERS SQUIBB COMPANY-15121080

PATIENT
  Age: 40 Year
  Sex: Female

DRUGS (2)
  1. REYATAZ [Suspect]
     Dates: start: 20050101
  2. RITONAVIR [Suspect]

REACTIONS (1)
  - NEPHROLITHIASIS [None]
